FAERS Safety Report 23115877 (Version 1)
Quarter: 2023Q4

REPORT INFORMATION
  Report Type: Spontaneous
  Country: US (occurrence: None)
  Receive Date: 20231024
  Receipt Date: 20231024
  Transmission Date: 20240110
  Serious: Yes (Hospitalization, Other)
  Sender: FDA-Public Use
  Company Number: None

PATIENT
  Age: 64 Year
  Sex: Male

DRUGS (1)
  1. REVLIMID [Suspect]
     Active Substance: LENALIDOMIDE
     Indication: Plasma cell myeloma
     Dosage: FREQUENCY : DAILY;?
     Route: 048
     Dates: start: 20210208, end: 20230227

REACTIONS (6)
  - Dyspnoea [None]
  - Influenza like illness [None]
  - Sepsis [None]
  - Acute respiratory failure [None]
  - Pneumonia [None]
  - Plasma cell myeloma [None]

NARRATIVE: CASE EVENT DATE: 20231023
